FAERS Safety Report 19736518 (Version 2)
Quarter: 2021Q3

REPORT INFORMATION
  Report Type: Spontaneous
  Country: CA (occurrence: CA)
  Receive Date: 20210824
  Receipt Date: 20210902
  Transmission Date: 20211014
  Serious: Yes (Other)
  Sender: FDA-Public Use
  Company Number: CA-CELLTRION INC.-2021CA011486

PATIENT

DRUGS (1)
  1. INFLECTRA [Suspect]
     Active Substance: INFLIXIMAB-DYYB
     Indication: CROHN^S DISEASE
     Dosage: 800 MG,EVERY 6WEEKS
     Route: 042
     Dates: start: 20210115

REACTIONS (4)
  - Intentional product use issue [Unknown]
  - Off label use [Unknown]
  - Skin infection [Not Recovered/Not Resolved]
  - Omphalitis [Not Recovered/Not Resolved]

NARRATIVE: CASE EVENT DATE: 202108
